FAERS Safety Report 4358629-5 (Version None)
Quarter: 2004Q2

REPORT INFORMATION
  Report Type: 
  Country: None (occurrence: None)
  Receive Date: 20040514
  Receipt Date: 20040514
  Transmission Date: 20050107
  Serious: Yes (Other)
  Sender: FDA-Public Use
  Company Number: None

PATIENT
  Age: 57 Year
  Sex: Female
  Weight: 52.1637 kg

DRUGS (1)
  1. VAGISIL  MAXIMUM  COMBE [Suspect]
     Indication: PRURITUS
     Dosage: 06/03/2002

REACTIONS (2)
  - VAGINAL BURNING SENSATION [None]
  - VAGINITIS [None]
